FAERS Safety Report 21506155 (Version 1)
Quarter: 2022Q4

REPORT INFORMATION
  Report Type: Spontaneous
  Country: US (occurrence: US)
  Receive Date: 20221026
  Receipt Date: 20221026
  Transmission Date: 20230112
  Serious: Yes (Other)
  Sender: FDA-Public Use
  Company Number: US-MLMSERVICE-20221010-3847999-1

PATIENT
  Age: 19 Year
  Sex: Female

DRUGS (3)
  1. HYDROXYCHLOROQUINE [Suspect]
     Active Substance: HYDROXYCHLOROQUINE
     Indication: Necrobiosis lipoidica diabeticorum
     Dosage: 200 MILLIGRAM, TWO TIMES A DAY
     Route: 065
  2. PENTOXIFYLLINE [Concomitant]
     Active Substance: PENTOXIFYLLINE
     Indication: Necrobiosis lipoidica diabeticorum
     Dosage: 400 MILLIGRAM, TWO TIMES A DAY
     Route: 065
  3. TOFACITINIB [Concomitant]
     Active Substance: TOFACITINIB
     Indication: Necrobiosis lipoidica diabeticorum
     Dosage: UNK, TWO TIMES A DAY
     Route: 065

REACTIONS (1)
  - Syncope [Unknown]
